FAERS Safety Report 6255525-3 (Version None)
Quarter: 2009Q3

REPORT INFORMATION
  Report Type: 
  Country: None (occurrence: None)
  Receive Date: 20090702
  Receipt Date: 20090624
  Transmission Date: 20100115
  Serious: Yes (Other)
  Sender: FDA-Public Use
  Company Number: FR-AMGEN-US293089

PATIENT
  Age: 56 Year
  Sex: Female

DRUGS (1)
  1. ENBREL [Suspect]
     Indication: SPONDYLOARTHROPATHY
     Route: 058
     Dates: start: 20070301, end: 20080501

REACTIONS (5)
  - EAR INFECTION [None]
  - ERYTHEMA [None]
  - LUNG DISORDER [None]
  - SKIN PLAQUE [None]
  - TOXIC SKIN ERUPTION [None]
